FAERS Safety Report 21983433 (Version 1)
Quarter: 2023Q1

REPORT INFORMATION
  Report Type: Spontaneous
  Country: US (occurrence: US)
  Receive Date: 20230213
  Receipt Date: 20230213
  Transmission Date: 20230417
  Serious: No
  Sender: FDA-Public Use
  Company Number: US-OTSUKA-2023_002743

PATIENT
  Age: 52 Year
  Sex: Male

DRUGS (21)
  1. BUSULFAN [Suspect]
     Active Substance: BUSULFAN
     Indication: Angiocentric lymphoma
     Dosage: 3.2 MG/KG
     Route: 065
  2. BUSULFAN [Suspect]
     Active Substance: BUSULFAN
     Indication: Bone marrow conditioning regimen
  3. BUSULFAN [Suspect]
     Active Substance: BUSULFAN
     Indication: Autologous haematopoietic stem cell transplant
  4. GEMCITABINE [Concomitant]
     Active Substance: GEMCITABINE
     Indication: Bone marrow conditioning regimen
     Dosage: 1000 MG/M2
     Route: 065
  5. GEMCITABINE [Concomitant]
     Active Substance: GEMCITABINE
     Indication: Autologous haematopoietic stem cell transplant
  6. GEMCITABINE [Concomitant]
     Active Substance: GEMCITABINE
     Indication: Angiocentric lymphoma
  7. OXALIPLATIN [Concomitant]
     Active Substance: OXALIPLATIN
     Indication: Bone marrow conditioning regimen
     Dosage: 100 MG/M2
     Route: 065
  8. OXALIPLATIN [Concomitant]
     Active Substance: OXALIPLATIN
     Indication: Autologous haematopoietic stem cell transplant
  9. OXALIPLATIN [Concomitant]
     Active Substance: OXALIPLATIN
     Indication: Angiocentric lymphoma
  10. ASPARAGINASE [Concomitant]
     Active Substance: ASPARAGINASE
     Indication: Bone marrow conditioning regimen
     Dosage: 2,500 U/M2
     Route: 065
  11. ASPARAGINASE [Concomitant]
     Active Substance: ASPARAGINASE
     Indication: Autologous haematopoietic stem cell transplant
  12. ASPARAGINASE [Concomitant]
     Active Substance: ASPARAGINASE
     Indication: Angiocentric lymphoma
  13. DEXAMETHASONE [Concomitant]
     Active Substance: DEXAMETHASONE
     Indication: Bone marrow conditioning regimen
     Dosage: 20 MG
     Route: 065
  14. DEXAMETHASONE [Concomitant]
     Active Substance: DEXAMETHASONE
     Indication: Autologous haematopoietic stem cell transplant
  15. DEXAMETHASONE [Concomitant]
     Active Substance: DEXAMETHASONE
     Indication: Angiocentric lymphoma
  16. THIOTEPA [Concomitant]
     Active Substance: THIOTEPA
     Indication: Bone marrow conditioning regimen
     Dosage: 250 MG/M2
     Route: 065
  17. THIOTEPA [Concomitant]
     Active Substance: THIOTEPA
     Indication: Autologous haematopoietic stem cell transplant
  18. THIOTEPA [Concomitant]
     Active Substance: THIOTEPA
     Indication: Angiocentric lymphoma
  19. CYCLOPHOSPHAMIDE [Concomitant]
     Active Substance: CYCLOPHOSPHAMIDE
     Indication: Bone marrow conditioning regimen
     Dosage: 60 MG/KG
     Route: 065
  20. CYCLOPHOSPHAMIDE [Concomitant]
     Active Substance: CYCLOPHOSPHAMIDE
     Indication: Autologous haematopoietic stem cell transplant
  21. CYCLOPHOSPHAMIDE [Concomitant]
     Active Substance: CYCLOPHOSPHAMIDE
     Indication: Angiocentric lymphoma

REACTIONS (1)
  - Product use in unapproved indication [Unknown]
